FAERS Safety Report 5003150-4 (Version None)
Quarter: 2006Q2

REPORT INFORMATION
  Report Type: 
  Country: None (occurrence: None)
  Receive Date: 20060516
  Receipt Date: 20060503
  Transmission Date: 20061013
  Serious: Yes (Hospitalization)
  Sender: FDA-Public Use
  Company Number: FR-NOVOPROD-253066

PATIENT
  Age: 14 Year
  Sex: Male
  Weight: 76 kg

DRUGS (2)
  1. NORDITROPIN SIMPLEXX [Suspect]
     Indication: HYPOPITUITARISM
     Dates: start: 20020415
  2. HYDROCORTISON                      /00028601/ [Concomitant]
     Route: 058
     Dates: start: 20010715

REACTIONS (1)
  - OSTEONECROSIS [None]
